FAERS Safety Report 22541349 (Version 4)
Quarter: 2024Q1

REPORT INFORMATION
  Report Type: Report from Study
  Country: MY (occurrence: MY)
  Receive Date: 20230609
  Receipt Date: 20240306
  Transmission Date: 20240410
  Serious: Yes (Death, Hospitalization, Other)
  Sender: FDA-Public Use
  Company Number: MY-EXELIXIS-CABO-23064670

PATIENT
  Age: 80 Year
  Sex: Female

DRUGS (1)
  1. CABOMETYX [Suspect]
     Active Substance: CABOZANTINIB S-MALATE
     Indication: Hepatocellular carcinoma
     Dosage: 40 MG, QOD
     Route: 048
     Dates: start: 202305, end: 202310

REACTIONS (9)
  - Critical illness [Recovering/Resolving]
  - Syncope [Recovered/Resolved]
  - Metastases to lung [Fatal]
  - Metastases to stomach [Fatal]
  - Hypertension [Unknown]
  - Bacterial infection [Unknown]
  - Ascites [Unknown]
  - Organ failure [Unknown]
  - Off label use [Unknown]

NARRATIVE: CASE EVENT DATE: 20231101
